FAERS Safety Report 17888045 (Version 2)
Quarter: 2020Q4

REPORT INFORMATION
  Report Type: Report from Study
  Country: None (occurrence: US)
  Receive Date: 20200612
  Receipt Date: 20201002
  Transmission Date: 20210113
  Serious: Yes (Hospitalization, Other)
  Sender: FDA-Public Use
  Company Number: US-INSMED, INC.-US-INS-20-01091

PATIENT
  Age: 80 Year
  Sex: Female

DRUGS (2)
  1. ARIKAYCE [Suspect]
     Active Substance: AMIKACIN
     Indication: BURKHOLDERIA MALLEI INFECTION
  2. ARIKAYCE [Suspect]
     Active Substance: AMIKACIN
     Indication: MYCOBACTERIAL INFECTION
     Route: 055
     Dates: start: 202003

REACTIONS (12)
  - Epistaxis [Recovered/Resolved]
  - Epistaxis [Recovered/Resolved]
  - Product dose omission issue [Unknown]
  - Nasal crusting [Unknown]
  - Epistaxis [Recovered/Resolved]
  - Arthralgia [Not Recovered/Not Resolved]
  - Mouth haemorrhage [Recovered/Resolved]
  - Fatigue [Not Recovered/Not Resolved]
  - Product packaging difficult to open [Unknown]
  - Epistaxis [Recovered/Resolved]
  - Cough [Unknown]
  - Epistaxis [Recovered/Resolved]

NARRATIVE: CASE EVENT DATE: 2020
